FAERS Safety Report 8820396 (Version 2)
Quarter: 2012Q4

REPORT INFORMATION
  Report Type: 
  Country: GB (occurrence: GB)
  Receive Date: 20121002
  Receipt Date: 20121205
  Transmission Date: 20130627
  Serious: Yes (Other)
  Sender: FDA-Public Use
  Company Number: GB-009507513-1208GBR011777

PATIENT
  Age: 35 Year
  Sex: Female

DRUGS (1)
  1. NEXPLANON [Suspect]
     Indication: CONTRACEPTION
     Dosage: 1 DF, UNK
     Route: 059
     Dates: start: 20120703, end: 20120911

REACTIONS (6)
  - Hyperhidrosis [Unknown]
  - Myalgia [Unknown]
  - Menorrhagia [Unknown]
  - Weight increased [Unknown]
  - Adverse drug reaction [Unknown]
  - Fatigue [Unknown]
